FAERS Safety Report 7595604-1 (Version None)
Quarter: 2011Q3

REPORT INFORMATION
  Report Type: 
  Country: None (occurrence: None)
  Receive Date: 20110707
  Receipt Date: 20110629
  Transmission Date: 20111222
  Serious: Yes (Other)
  Sender: FDA-Public Use
  Company Number: PT-GLAXOSMITHKLINE-B0721806A

PATIENT
  Sex: Male
  Weight: 59 kg

DRUGS (5)
  1. TAMSULOSIN HCL [Concomitant]
     Indication: BENIGN PROSTATIC HYPERPLASIA
     Dosage: .4MG PER DAY
     Route: 048
     Dates: start: 20110412
  2. DUTASTERIDE/TAMSULOSIN HYDROCHLORIDE [Suspect]
     Indication: BENIGN PROSTATIC HYPERPLASIA
     Route: 048
     Dates: start: 20110413, end: 20110426
  3. INDAPAMIDE [Concomitant]
     Indication: HYPERTENSION
     Dosage: 1.5MG PER DAY
     Route: 048
     Dates: start: 20090101
  4. FINASTERIDE [Concomitant]
     Indication: BENIGN PROSTATIC HYPERPLASIA
     Dosage: 5MG PER DAY
     Route: 048
     Dates: start: 20110412
  5. VALDISPERT [Concomitant]
     Indication: ANXIETY
     Route: 065
     Dates: start: 20080101

REACTIONS (5)
  - RASH [None]
  - BLISTER [None]
  - NASAL OEDEMA [None]
  - DIZZINESS [None]
  - LIP SWELLING [None]
